FAERS Safety Report 6502889-9 (Version None)
Quarter: 2009Q4

REPORT INFORMATION
  Report Type: 
  Country: None (occurrence: None)
  Receive Date: 20091217
  Receipt Date: 20091209
  Transmission Date: 20100525
  Serious: Yes (Other)
  Sender: FDA-Public Use
  Company Number: BR-ASTRAZENECA-2009SE31405

PATIENT
  Age: 40 Year
  Sex: Male
  Weight: 92 kg

DRUGS (2)
  1. ATACAND [Suspect]
     Indication: HYPERTENSION
     Route: 048
     Dates: start: 20081201
  2. PROPRANOLOL [Suspect]
     Indication: HYPERTENSION
     Route: 048
     Dates: end: 20081201

REACTIONS (2)
  - CHEST PAIN [None]
  - HYPERTENSION [None]
